FAERS Safety Report 10745738 (Version 1)
Quarter: 2015Q1

REPORT INFORMATION
  Report Type: Spontaneous
  Country: US (occurrence: None)
  Receive Date: 20150127
  Receipt Date: 20150127
  Transmission Date: 20150721
  Serious: Yes (Disabling)
  Sender: FDA-Public Use
  Company Number: None

PATIENT
  Age: 83 Year
  Sex: Male
  Weight: 113.4 kg

DRUGS (2)
  1. ALPHAGAN P [Suspect]
     Active Substance: BRIMONIDINE TARTRATE
     Indication: GLAUCOMA
     Dosage: 1 DROP IN A.M. AND AT BEDTIME, TWICE DAILY, INTO THE EYE?
     Route: 047
     Dates: start: 20141110, end: 20150126
  2. ALPHAGAN P [Suspect]
     Active Substance: BRIMONIDINE TARTRATE
     Indication: INTRAOCULAR PRESSURE INCREASED
     Dosage: 1 DROP IN A.M. AND AT BEDTIME, TWICE DAILY, INTO THE EYE?
     Route: 047
     Dates: start: 20141110, end: 20150126

REACTIONS (5)
  - Eyelid oedema [None]
  - Photosensitivity reaction [None]
  - Eyelids pruritus [None]
  - Glare [None]
  - Visual acuity reduced [None]

NARRATIVE: CASE EVENT DATE: 20150116
